FAERS Safety Report 6430338-8 (Version None)
Quarter: 2009Q4

REPORT INFORMATION
  Report Type: 
  Country: None (occurrence: None)
  Receive Date: 20091106
  Receipt Date: 20091027
  Transmission Date: 20100525
  Serious: Yes (Hospitalization, Other)
  Sender: FDA-Public Use
  Company Number: US-ABBOTT-09P-163-0602752-00

PATIENT
  Sex: Female
  Weight: 50.848 kg

DRUGS (8)
  1. HUMIRA [Suspect]
     Indication: RHEUMATOID ARTHRITIS
     Dates: start: 20090801, end: 20090801
  2. HUMIRA [Suspect]
     Dates: start: 20080101, end: 20081030
  3. CELEBREX [Concomitant]
     Indication: RHEUMATOID ARTHRITIS
  4. PRILOSEC [Concomitant]
     Indication: PROPHYLAXIS AGAINST GASTROINTESTINAL ULCER
  5. METOPROLOL [Concomitant]
     Indication: HYPERTENSION
  6. TYLENOL [Concomitant]
     Indication: PAIN
  7. XANAX [Concomitant]
     Indication: ANXIETY
  8. UNKNOWN DIURETIC [Concomitant]
     Indication: FLUID RETENTION

REACTIONS (4)
  - BLOOD ALKALINE PHOSPHATASE INCREASED [None]
  - BLOOD BILIRUBIN INCREASED [None]
  - PANCREATIC CARCINOMA [None]
  - PRURITUS [None]
